FAERS Safety Report 8935707 (Version 1)
Quarter: 2012Q4

REPORT INFORMATION
  Report Type: 
  Country: US (occurrence: US)
  Receive Date: 20121130
  Receipt Date: 20121130
  Transmission Date: 20130627
  Serious: Yes (Other)
  Sender: FDA-Public Use
  Company Number: US-BAYER-2012-124565

PATIENT
  Age: 42 Year
  Sex: Female

DRUGS (6)
  1. OCELLA [Suspect]
  2. YAZ [Suspect]
  3. YASMIN [Suspect]
  4. OXYCODONE/APAP [Concomitant]
  5. AZITHROMYCIN [Concomitant]
     Dosage: 250 mg
  6. LEVOTHYROXINE [Concomitant]
     Dosage: 75 ?g, UNK

REACTIONS (1)
  - Deep vein thrombosis [None]
